FAERS Safety Report 6877195-3 (Version None)
Quarter: 2010Q3

REPORT INFORMATION
  Report Type: 
  Country: None (occurrence: None)
  Receive Date: 20100727
  Receipt Date: 20100721
  Transmission Date: 20110219
  Serious: Yes (Other)
  Sender: FDA-Public Use
  Company Number: US-AMGEN-QUU424199

PATIENT
  Sex: Female
  Weight: 50.4 kg

DRUGS (2)
  1. NPLATE [Suspect]
     Indication: IDIOPATHIC THROMBOCYTOPENIC PURPURA
     Dates: start: 20090410
  2. IMMU-G [Concomitant]

REACTIONS (1)
  - CARDIAC FAILURE CONGESTIVE [None]
